FAERS Safety Report 6567506-0 (Version None)
Quarter: 2010Q1

REPORT INFORMATION
  Report Type: 
  Country: None (occurrence: None)
  Receive Date: 20100202
  Receipt Date: 20100125
  Transmission Date: 20100710
  Serious: Yes (Death, Life-Threatening)
  Sender: FDA-Public Use
  Company Number: JP-ABBOTT-10P-087-0619576-00

PATIENT

DRUGS (3)
  1. SEVOFRANE [Suspect]
     Indication: GENERAL ANAESTHESIA
     Dosage: 1-3%
     Route: 055
     Dates: start: 20091224, end: 20091224
  2. FENTANYL CITRATE [Concomitant]
     Indication: GENERAL ANAESTHESIA
     Route: 042
     Dates: start: 20091224, end: 20091224
  3. CEFAZOLIN SODIUM [Concomitant]
     Indication: INFECTION PROPHYLAXIS
     Route: 042
     Dates: start: 20091224, end: 20091224

REACTIONS (5)
  - BLOOD PRESSURE DECREASED [None]
  - HYPERTHERMIA MALIGNANT [None]
  - HYPOXIA [None]
  - RENAL FAILURE ACUTE [None]
  - TACHYCARDIA [None]
